FAERS Safety Report 15337159 (Version 3)
Quarter: 2021Q2

REPORT INFORMATION
  Report Type: Report from Study
  Country: US (occurrence: US)
  Receive Date: 20180831
  Receipt Date: 20210410
  Transmission Date: 20210716
  Serious: No
  Sender: FDA-Public Use
  Company Number: US-SHIRE-US201833666

PATIENT
  Age: 69 Year
  Sex: Female

DRUGS (4)
  1. TEDUGLUTIDE [Suspect]
     Active Substance: TEDUGLUTIDE
     Indication: SHORT-BOWEL SYNDROME
     Dosage: 1.1 MILLILITER, EVERY 2 DAYS OTHER
     Route: 050
     Dates: start: 20140313
  2. TEDUGLUTIDE [Suspect]
     Active Substance: TEDUGLUTIDE
     Indication: SHORT-BOWEL SYNDROME
     Dosage: 1.1 MILLILITER, EVERY 2 DAYS OTHER
     Route: 050
     Dates: start: 20140313
  3. TEDUGLUTIDE [Suspect]
     Active Substance: TEDUGLUTIDE
     Indication: SHORT-BOWEL SYNDROME
     Dosage: 1.1 MILLILITER, EVERY 2 DAYS OTHER
     Route: 050
     Dates: start: 20140313
  4. TEDUGLUTIDE [Suspect]
     Active Substance: TEDUGLUTIDE
     Indication: SHORT-BOWEL SYNDROME
     Dosage: 1.1 MILLILITER, EVERY 2 DAYS OTHER
     Route: 050
     Dates: start: 20140313

REACTIONS (4)
  - Therapy interrupted [Unknown]
  - Obstruction [Recovered/Resolved]
  - Dehydration [Unknown]
  - Illness [Unknown]

NARRATIVE: CASE EVENT DATE: 20180828
